FAERS Safety Report 9162824 (Version 1)
Quarter: 2013Q1

REPORT INFORMATION
  Report Type: Spontaneous
  Country: US (occurrence: None)
  Receive Date: 20130227
  Receipt Date: 20130227
  Transmission Date: 20140127
  Serious: Yes (Hospitalization)
  Sender: FDA-Public Use
  Company Number: ACET20130002

PATIENT
  Age: 59 Year
  Sex: Female

DRUGS (1)
  1. Q-PAP TABLETS 325MG (PARACETAMOL) (TABLETS) [Suspect]
     Indication: SUICIDE ATTEMPT
     Route: 048

REACTIONS (8)
  - Metabolic acidosis [None]
  - Coma [None]
  - Suicide attempt [None]
  - Intentional self-injury [None]
  - Laceration [None]
  - Electrocardiogram ST-T change [None]
  - Electrocardiogram QT prolonged [None]
  - Drug level increased [None]
